FAERS Safety Report 14775893 (Version 1)
Quarter: 2018Q2

REPORT INFORMATION
  Report Type: Spontaneous
  Country: FR (occurrence: FR)
  Receive Date: 20180418
  Receipt Date: 20180418
  Transmission Date: 20180711
  Serious: Yes (Other)
  Sender: FDA-Public Use
  Company Number: FR-TEVA-2018-FR-882484

PATIENT
  Sex: Female

DRUGS (4)
  1. LAMOTRIGINE TEVA 25 MG [Suspect]
     Active Substance: LAMOTRIGINE
     Indication: MUSCLE SPASMS
  2. EFFEXOR [Concomitant]
     Active Substance: VENLAFAXINE HYDROCHLORIDE
     Dosage: 2 DOSAGE FORMS DAILY;
  3. TERCIAN 25 MG [Concomitant]
     Active Substance: CYAMEMAZINE
     Dosage: .5 DOSAGE FORMS DAILY;
  4. TEMESTA 2,5 MG [Concomitant]
     Dosage: 3 DOSAGE FORMS DAILY;

REACTIONS (1)
  - Epilepsy [Unknown]
